FAERS Safety Report 9859778 (Version 2)
Quarter: 2014Q1

REPORT INFORMATION
  Report Type: Report from Study
  Country: JP (occurrence: JP)
  Receive Date: 20140131
  Receipt Date: 20140131
  Transmission Date: 20141002
  Serious: Yes (Death, Hospitalization, Other)
  Sender: FDA-Public Use
  Company Number: JP-009507513-1305JPN007855

PATIENT
  Age: 64 Year
  Sex: Female
  Weight: 49 kg

DRUGS (17)
  1. TEMOZOLOMIDE [Suspect]
     Indication: ANAPLASTIC ASTROCYTOMA
     Dosage: 75 MG/M2, QD
     Route: 048
     Dates: start: 20101203, end: 20110111
  2. TEMOZOLOMIDE [Suspect]
     Dosage: 150 MG/M2, QD
     Route: 048
     Dates: start: 20120116, end: 20120120
  3. TEMOZOLOMIDE [Suspect]
     Dosage: 150 MG/M2, QD
     Route: 048
     Dates: start: 20120220, end: 20120224
  4. BAKTAR [Suspect]
     Indication: ANTIFUNGAL PROPHYLAXIS
     Dosage: DAILY DOSAGE UNKNOWN
     Route: 048
     Dates: start: 20101210, end: 20110211
  5. EXCEGRAN [Suspect]
     Dosage: DAILY DOSAGE UNKNOWN
     Route: 048
     Dates: end: 20120417
  6. PANSPORIN [Suspect]
     Dosage: DAILY DOSAGE UNKNOWN
     Route: 042
     Dates: start: 20110112, end: 20110124
  7. NORVASC [Concomitant]
     Dosage: DAILY DOSAGE UNKNOWN
     Route: 048
     Dates: end: 20111220
  8. MUCOSTA [Concomitant]
     Dosage: DAILY DOSAGE UNKNOWN
     Route: 048
     Dates: end: 20111220
  9. GASMOTIN [Concomitant]
     Dosage: DAILY DOSAGE UNKNOWN
     Route: 048
     Dates: end: 20111220
  10. MYSLEE [Concomitant]
     Dosage: DAILY DOSAGE UNKNOWN
     Route: 048
     Dates: end: 20111220
  11. SINSERON [Concomitant]
     Indication: PROPHYLAXIS
     Dosage: DAILY DOSAGE UNKNOWN
     Route: 048
     Dates: start: 20101203, end: 20110111
  12. MUCODYNE [Concomitant]
     Indication: PROPHYLAXIS
     Dosage: DAILY DOSAGE UNKNOWN
     Route: 048
     Dates: start: 20110110, end: 20111207
  13. GLYCEREB [Concomitant]
     Dosage: DAILY DOSAGE UNKNOWN
     Route: 042
     Dates: start: 20101220, end: 20110301
  14. DEXART [Concomitant]
     Dosage: DAILY DOSAGE UNKNOWN
     Route: 042
     Dates: start: 20110112, end: 20110113
  15. PREDONINE [Concomitant]
     Dosage: DAILY DOSAGE UNKNOWN
     Route: 042
     Dates: start: 20110114, end: 20111207
  16. BFLUID [Concomitant]
     Dosage: DAILY DOSAGE UNKNOWN
     Route: 042
     Dates: end: 20110307
  17. BACTRAMIN [Concomitant]
     Indication: ANTIFUNGAL PROPHYLAXIS
     Dosage: DAILY DOSAGE UNKNOWN
     Route: 042
     Dates: start: 20120116, end: 20120224

REACTIONS (14)
  - Disease progression [Fatal]
  - Platelet count decreased [Not Recovered/Not Resolved]
  - Decreased appetite [Recovering/Resolving]
  - White blood cell count decreased [Recovered/Resolved]
  - Haematocrit decreased [Recovered/Resolved]
  - Neutrophil count increased [Recovered/Resolved]
  - Hypercreatininaemia [Recovered/Resolved]
  - C-reactive protein increased [Recovered/Resolved]
  - Hyponatraemia [Recovered/Resolved]
  - Neutrophil count decreased [Recovered/Resolved]
  - Blood urea increased [Recovered/Resolved]
  - Hypoalbuminaemia [Not Recovered/Not Resolved]
  - Lymphocyte count decreased [Recovered/Resolved]
  - Blood alkaline phosphatase increased [Not Recovered/Not Resolved]
